FAERS Safety Report 7035508-6 (Version None)
Quarter: 2010Q4

REPORT INFORMATION
  Report Type: 
  Country: None (occurrence: None)
  Receive Date: 20101008
  Receipt Date: 20101004
  Transmission Date: 20110411
  Serious: Yes (Other)
  Sender: FDA-Public Use
  Company Number: JP-PFIZER INC-2010105582

PATIENT
  Age: 59 Year
  Sex: Male

DRUGS (6)
  1. VFEND [Suspect]
     Indication: ENCEPHALITIS
     Dosage: 200MG DAILY
     Route: 048
     Dates: start: 20100818, end: 20100830
  2. VFEND [Suspect]
     Dosage: 400MG DAILY
     Route: 048
     Dates: start: 20100831
  3. AMBISOME [Suspect]
     Indication: ENCEPHALITIS
     Dosage: UNK
     Route: 041
     Dates: start: 20100701, end: 20100701
  4. MYCOSYST [Suspect]
     Indication: ENCEPHALITIS
     Dosage: 400MG DAILY
     Route: 048
     Dates: start: 20100701, end: 20100817
  5. MYCOSYST [Suspect]
     Dosage: 200MG DAILY
     Route: 048
     Dates: start: 20100818, end: 20100830
  6. FLUCYTOSINE [Concomitant]

REACTIONS (6)
  - ARTHRALGIA [None]
  - EYE DISORDER [None]
  - HYPOAESTHESIA FACIAL [None]
  - LIVER FUNCTION TEST ABNORMAL [None]
  - PAIN IN EXTREMITY [None]
  - PHOTOSENSITIVITY REACTION [None]
